FAERS Safety Report 13515314 (Version 1)
Quarter: 2017Q2

REPORT INFORMATION
  Report Type: Spontaneous
  Country: US (occurrence: US)
  Receive Date: 20170504
  Receipt Date: 20170504
  Transmission Date: 20170830
  Serious: Yes (Other)
  Sender: FDA-Public Use
  Company Number: US-PFIZER INC-2017194422

PATIENT
  Sex: Female

DRUGS (3)
  1. AROMASIN [Suspect]
     Active Substance: EXEMESTANE
     Indication: BREAST CANCER
     Dosage: 1 DF, 1X/DAY
     Route: 048
  2. NOVOLOG [Concomitant]
     Active Substance: INSULIN ASPART
     Indication: DIABETES MELLITUS
     Dosage: AT EACH MEAL, 20 (UNIT NOT PROVIDED)
  3. LANTUS [Concomitant]
     Active Substance: INSULIN GLARGINE
     Indication: DIABETES MELLITUS
     Dosage: 120 IU, DAILY (80 UNITS IN THE MORNING AND 40 AT NIGHT)

REACTIONS (5)
  - Pyrexia [Unknown]
  - Fall [Unknown]
  - Hypertension [Unknown]
  - Infection [Unknown]
  - Renal disorder [Unknown]
